FAERS Safety Report 6699385-5 (Version None)
Quarter: 2010Q2

REPORT INFORMATION
  Report Type: 
  Country: None (occurrence: None)
  Receive Date: 20100427
  Receipt Date: 20100421
  Transmission Date: 20101027
  Serious: Yes (Other)
  Sender: FDA-Public Use
  Company Number: IE-AMGEN-KDL407467

PATIENT
  Sex: Female

DRUGS (1)
  1. NEULASTA [Suspect]
     Indication: CHEMOTHERAPY

REACTIONS (1)
  - PULMONARY OEDEMA [None]
